FAERS Safety Report 9714744 (Version 2)
Quarter: 2014Q1

REPORT INFORMATION
  Report Type: Spontaneous
  Country: FR (occurrence: None)
  Receive Date: 20131125
  Receipt Date: 20140114
  Transmission Date: 20141002
  Serious: Yes (Other)
  Sender: FDA-Public Use
  Company Number: SYM-2013-12984

PATIENT
  Age: 59 Year
  Sex: Male

DRUGS (2)
  1. FLUOROURACIL (FLUOROURACIL) (FLUOROURACIL) [Suspect]
     Indication: SQUAMOUS CELL CARCINOMA OF LUNG
  2. CISPLATIN (CISPLATIN) (CISPLATIN) [Concomitant]

REACTIONS (2)
  - Electrocardiogram abnormal [None]
  - Subendocardial ischaemia [None]
